FAERS Safety Report 4486106-X (Version None)
Quarter: 2004Q4

REPORT INFORMATION
  Report Type: 
  Country: None (occurrence: None)
  Receive Date: 20041021
  Receipt Date: 20040930
  Transmission Date: 20050328
  Serious: Yes (Hospitalization)
  Sender: FDA-Public Use
  Company Number: A01200404788

PATIENT
  Age: 59 Year
  Sex: Female

DRUGS (9)
  1. (CLOPIDOGREL)-TABLET-75 MG [Suspect]
     Dosage: 75 MG QD, ORAL
     Route: 048
     Dates: start: 20000902
  2. AGGRASTAT [Suspect]
     Dosage: INTRAVENOUS NOS
     Route: 042
     Dates: start: 20000901, end: 20000902
  3. GTN [Concomitant]
  4. IMDUR [Concomitant]
  5. SLOW-K [Concomitant]
  6. ASPIRIN [Concomitant]
  7. BENDROFLUMETHIAZIDE [Concomitant]
  8. METOPROLOL SUCCINATE [Concomitant]
  9. SIMVASTATIN [Concomitant]

REACTIONS (3)
  - EPISTAXIS [None]
  - RASH PRURITIC [None]
  - SYSTEMIC LUPUS ERYTHEMATOSUS RASH [None]
